FAERS Safety Report 4588792-2 (Version None)
Quarter: 2005Q1

REPORT INFORMATION
  Report Type: 
  Country: None (occurrence: None)
  Receive Date: 20050216
  Receipt Date: 20050209
  Transmission Date: 20050727
  Serious: Yes (Death)
  Sender: FDA-Public Use
  Company Number: 163-20785-05010213

PATIENT
  Age: 76 Year
  Sex: Female

DRUGS (1)
  1. THALOMID [Suspect]
     Indication: MULTIPLE MYELOMA
     Dosage: 200 MG, DAILY, ORAL
     Route: 048
     Dates: start: 20040908, end: 20041017

REACTIONS (4)
  - DIVERTICULAR PERFORATION [None]
  - DIVERTICULITIS [None]
  - ILL-DEFINED DISORDER [None]
  - SEPSIS [None]
